FAERS Safety Report 25041622 (Version 6)
Quarter: 2025Q2

REPORT INFORMATION
  Report Type: Spontaneous
  Country: JP (occurrence: JP)
  Receive Date: 20250305
  Receipt Date: 20250609
  Transmission Date: 20250717
  Serious: Yes (Hospitalization)
  Sender: BIOGEN
  Company Number: JP-BIOGEN-2025BI01301498

PATIENT
  Age: 27 Year
  Sex: Female
  Weight: 41.1 kg

DRUGS (5)
  1. TYSABRI [Suspect]
     Active Substance: NATALIZUMAB
     Indication: Multiple sclerosis
     Route: 050
     Dates: start: 20230420, end: 20241024
  2. KESIMPTA [Suspect]
     Active Substance: OFATUMUMAB
     Indication: Multiple sclerosis
     Route: 050
     Dates: start: 20241121, end: 20241121
  3. KESIMPTA [Suspect]
     Active Substance: OFATUMUMAB
     Route: 050
     Dates: start: 20241128, end: 20241128
  4. KESIMPTA [Suspect]
     Active Substance: OFATUMUMAB
     Route: 050
     Dates: start: 20241205, end: 20241205
  5. KESIMPTA [Suspect]
     Active Substance: OFATUMUMAB
     Route: 050
     Dates: start: 20241219, end: 20250116

REACTIONS (3)
  - Progressive multifocal leukoencephalopathy [Unknown]
  - Post lumbar puncture syndrome [Not Recovered/Not Resolved]
  - Prescribed underdose [Unknown]

NARRATIVE: CASE EVENT DATE: 20250220
